FAERS Safety Report 10686427 (Version 1)
Quarter: 2014Q4

REPORT INFORMATION
  Report Type: Report from Study
  Country: US (occurrence: US)
  Receive Date: 20141231
  Receipt Date: 20141231
  Transmission Date: 20150529
  Serious: Yes (Death, Life-Threatening, Other)
  Sender: FDA-Public Use
  Company Number: US-ASTRAZENECA-2014SE98569

PATIENT
  Age: 911 Month
  Sex: Male
  Weight: 102.1 kg

DRUGS (2)
  1. NEXIUM [Suspect]
     Active Substance: ESOMEPRAZOLE MAGNESIUM
     Indication: GASTROOESOPHAGEAL REFLUX DISEASE
     Route: 048
  2. INSULIN [Concomitant]
     Active Substance: INSULIN NOS
     Indication: DIABETES MELLITUS
     Dosage: UNKNOWN
     Route: 058

REACTIONS (4)
  - Renal failure [Fatal]
  - Intentional product use issue [Unknown]
  - Staphylococcal infection [Fatal]
  - Death [Fatal]

NARRATIVE: CASE EVENT DATE: 201411
